FAERS Safety Report 8954883 (Version 1)
Quarter: 2012Q4

REPORT INFORMATION
  Report Type: 
  Country: AU (occurrence: AU)
  Receive Date: 20121207
  Receipt Date: 20121207
  Transmission Date: 20130627
  Serious: Yes (Other)
  Sender: FDA-Public Use
  Company Number: PHHY2012AU109924

PATIENT
  Sex: Female

DRUGS (10)
  1. CLOZARIL [Suspect]
     Indication: SCHIZOPHRENIA
     Dosage: UNK UKN, UNK
     Dates: start: 1996, end: 2000
  2. CLOZARIL [Suspect]
     Dosage: UNK UKN, UNK
     Dates: start: 2000, end: 2002
  3. CLOZARIL [Suspect]
     Dosage: 250 mg, daily
     Dates: start: 201106
  4. RAMIPRIL [Concomitant]
     Dosage: 5 mg, mane
     Route: 048
  5. METOPROLOL [Concomitant]
     Dosage: 12.5 mg, BID
     Route: 048
  6. ATORVASTATIN [Concomitant]
     Dosage: 40 mg, nocte
     Route: 048
  7. OMEPRAZOLE [Concomitant]
     Dosage: 20 mg, mane
     Route: 048
  8. VENLAFAXINE [Concomitant]
     Dosage: 75 mg, mane
     Route: 048
  9. LORAZEPAM [Concomitant]
     Dosage: 0.5mg to 2.0mg Q24, maximum 8mg per 24 hours
     Route: 048
  10. OLANZAPINE [Concomitant]
     Dosage: 10 mg, BID
     Route: 048

REACTIONS (6)
  - Troponin increased [Unknown]
  - Mitral valve incompetence [Unknown]
  - Blood creatine phosphokinase increased [Unknown]
  - Sinus tachycardia [Unknown]
  - Blood pressure increased [Unknown]
  - Liver function test abnormal [Unknown]
